FAERS Safety Report 24380836 (Version 1)
Quarter: 2024Q3

REPORT INFORMATION
  Report Type: Spontaneous
  Country: JP (occurrence: JP)
  Receive Date: 20240930
  Receipt Date: 20240930
  Transmission Date: 20241017
  Serious: Yes (Other)
  Sender: PURDUE
  Company Number: JP-NAPPMUNDI-GBR-2024-0120009

PATIENT
  Age: 65 Year
  Sex: Male

DRUGS (4)
  1. OXYCONTIN [Suspect]
     Active Substance: OXYCODONE HYDROCHLORIDE
     Indication: Product used for unknown indication
     Dosage: 20 MILLIGRAM, DAILY
     Route: 048
  2. OXYCONTIN [Suspect]
     Active Substance: OXYCODONE HYDROCHLORIDE
     Dosage: 30 MILLIGRAM, DAILY
     Route: 048
     Dates: start: 2023
  3. OXYCONTIN [Suspect]
     Active Substance: OXYCODONE HYDROCHLORIDE
     Dosage: 40 MILLIGRAM, DAILY
     Route: 048
     Dates: start: 2023
  4. OXYCONTIN [Suspect]
     Active Substance: OXYCODONE HYDROCHLORIDE
     Dosage: 60 MILLIGRAM, DAILY
     Route: 048
     Dates: start: 2023

REACTIONS (12)
  - Diverticular perforation [Recovered/Resolved]
  - Gastrointestinal perforation [Recovering/Resolving]
  - Diverticulitis [Recovered/Resolved]
  - Constipation [Unknown]
  - Peritonitis [Recovered/Resolved]
  - Abdominal pain [Recovered/Resolved]
  - Infrequent bowel movements [Unknown]
  - Abdominal discomfort [Recovered/Resolved]
  - Constipation [Unknown]
  - Abdominal distension [Recovered/Resolved]
  - Mucosal inflammation [Unknown]
  - Pyrexia [Recovered/Resolved]

NARRATIVE: CASE EVENT DATE: 20230718
